FAERS Safety Report 18639451 (Version 9)
Quarter: 2025Q1

REPORT INFORMATION
  Report Type: Report from Study
  Country: TW (occurrence: TW)
  Receive Date: 20201219
  Receipt Date: 20250108
  Transmission Date: 20250409
  Serious: Yes (Hospitalization, Other)
  Sender: TAKEDA
  Company Number: TW-TAKEDA-2020TUS058969

PATIENT
  Age: 41 Year
  Sex: Male

DRUGS (3)
  1. RURIOCTOCOG ALFA PEGOL [Suspect]
     Active Substance: RURIOCTOCOG ALFA PEGOL
     Indication: Factor VIII deficiency
  2. RURIOCTOCOG ALFA PEGOL [Suspect]
     Active Substance: RURIOCTOCOG ALFA PEGOL
  3. RURIOCTOCOG ALFA PEGOL [Suspect]
     Active Substance: RURIOCTOCOG ALFA PEGOL

REACTIONS (7)
  - Upper gastrointestinal haemorrhage [Recovered/Resolved]
  - Contusion [Recovered/Resolved]
  - Fall [Recovered/Resolved]
  - Road traffic accident [Recovered/Resolved]
  - Haemoglobin decreased [Recovered/Resolved]
  - Gingival bleeding [Recovering/Resolving]
  - Nail injury [Recovering/Resolving]

NARRATIVE: CASE EVENT DATE: 20201215
